FAERS Safety Report 7965838-2 (Version None)
Quarter: 2011Q4

REPORT INFORMATION
  Report Type: 
  Country: None (occurrence: None)
  Receive Date: 20111208
  Receipt Date: 20111201
  Transmission Date: 20120403
  Serious: Yes (Other)
  Sender: FDA-Public Use
  Company Number: US-TEVA-311699USA

PATIENT

DRUGS (1)
  1. SOTALOL HCL [Suspect]

REACTIONS (1)
  - STEVENS-JOHNSON SYNDROME [None]
